FAERS Safety Report 10190862 (Version 1)
Quarter: 2014Q2

REPORT INFORMATION
  Report Type: Spontaneous
  Country: VI (occurrence: None)
  Receive Date: 20140521
  Receipt Date: 20140521
  Transmission Date: 20141212
  Serious: Yes (Other)
  Sender: FDA-Public Use
  Company Number: None

PATIENT
  Age: 48 Year
  Sex: Female

DRUGS (7)
  1. EXTAVIA [Suspect]
     Indication: MULTIPLE SCLEROSIS
     Dosage: GIVEN INTO/UNDER THE SKIN
     Route: 058
     Dates: start: 20140417, end: 20140515
  2. GABAPENTIN [Concomitant]
  3. BACLOFEN [Concomitant]
  4. LYRICA [Concomitant]
  5. VIT C [Concomitant]
  6. VIT B12 [Concomitant]
  7. VIT D3 [Concomitant]

REACTIONS (4)
  - Epistaxis [None]
  - Headache [None]
  - Vision blurred [None]
  - Product substitution issue [None]
